FAERS Safety Report 25130467 (Version 1)
Quarter: 2025Q1

REPORT INFORMATION
  Report Type: Spontaneous
  Country: US (occurrence: US)
  Receive Date: 20250327
  Receipt Date: 20250327
  Transmission Date: 20250408
  Serious: No
  Sender: BRISTOL-MYERS SQUIBB COMPANY
  Company Number: US-BRISTOL-MYERS SQUIBB COMPANY-2025-044966

PATIENT
  Age: 56 Year
  Sex: Female

DRUGS (1)
  1. ZEPOSIA [Suspect]
     Active Substance: OZANIMOD HYDROCHLORIDE
     Indication: Colitis ulcerative
     Dosage: DOSE: TAKE 0.23 MG BY MOUTH 1 TIME A DAY FOR 4 DAYS, THEN TAKE 0.46 MG 1 TIME A DAY FOR 3 DAYS, THEN
     Route: 048
     Dates: start: 202502

REACTIONS (1)
  - Drug ineffective [Unknown]
